FAERS Safety Report 10008114 (Version 2)
Quarter: 2014Q1

REPORT INFORMATION
  Report Type: Report from Study
  Country: CA (occurrence: CA)
  Receive Date: 20140313
  Receipt Date: 20140313
  Transmission Date: 20141002
  Serious: Yes (Hospitalization)
  Sender: FDA-Public Use
  Company Number: CA-SA-2014SA011508

PATIENT
  Age: 45 Year
  Sex: Female
  Weight: 91 kg

DRUGS (5)
  1. AUBAGIO [Suspect]
     Indication: RELAPSING-REMITTING MULTIPLE SCLEROSIS
     Route: 048
     Dates: start: 20131219, end: 20140131
  2. CODEINE CONTIN [Concomitant]
     Indication: PAIN
     Route: 048
  3. CLONAZEPAM [Concomitant]
     Indication: ANXIETY
     Route: 048
  4. TRAZODONE [Concomitant]
     Indication: ANXIETY
     Route: 048
  5. CITALOPRAM [Concomitant]
     Indication: ANXIETY
     Route: 048

REACTIONS (11)
  - Anal abscess [Recovering/Resolving]
  - Infection [Recovering/Resolving]
  - Proctalgia [Recovering/Resolving]
  - Erythema [Recovering/Resolving]
  - Haemorrhoids [Recovering/Resolving]
  - Asthenia [Not Recovered/Not Resolved]
  - Pyrexia [Not Recovered/Not Resolved]
  - Vomiting [Unknown]
  - Fatigue [Not Recovered/Not Resolved]
  - Nausea [Unknown]
  - Diarrhoea [Unknown]
